FAERS Safety Report 7845953-4 (Version None)
Quarter: 2011Q4

REPORT INFORMATION
  Report Type: 
  Country: None (occurrence: None)
  Receive Date: 20111025
  Receipt Date: 20111010
  Transmission Date: 20120403
  Serious: Yes (Hospitalization)
  Sender: FDA-Public Use
  Company Number: US-WATSON-2011-17225

PATIENT
  Age: 27 Year
  Sex: Female

DRUGS (1)
  1. HYDROCODONE BITARTRATE AND ACETAMINOPHEN [Suspect]
     Indication: ABDOMINAL PAIN
     Dosage: 20 G, DAILY (HC/APAP 5/500MG TABS 30-40/DAY X MANY WEEKS)
     Route: 048

REACTIONS (3)
  - METABOLIC ACIDOSIS [None]
  - DRUG ABUSE [None]
  - PYROGLUTAMATE INCREASED [None]
